FAERS Safety Report 10696906 (Version 1)
Quarter: 2015Q1

REPORT INFORMATION
  Report Type: Spontaneous
  Country: FR (occurrence: FR)
  Receive Date: 20150108
  Receipt Date: 20150108
  Transmission Date: 20150721
  Serious: Yes (Other)
  Sender: FDA-Public Use
  Company Number: FR-CIPLA LTD.-2014FR03029

PATIENT

DRUGS (22)
  1. ATAZANAVIR [Suspect]
     Active Substance: ATAZANAVIR
     Indication: HIV INFECTION
     Dosage: UNK
  2. RIBAVIRIN. [Suspect]
     Active Substance: RIBAVIRIN
     Indication: HEPATITIS C
     Dosage: 1200 MG, A DAY (FOR PATIENTS WEIGHING } 75 KG)
  3. ERYTHROPOIETIN [Concomitant]
     Active Substance: ERYTHROPOIETIN
     Indication: HEPATITIS C
  4. PEGYLATED INTERFERON NOS [Suspect]
     Active Substance: PEGINTERFERON ALFA-2A OR PEGINTERFERON ALFA-2B OR PEGINTERFERON BETA-1A OR PEGINTERFERON LAMBDA-1A
     Indication: HIV INFECTION
     Dosage: 180 MCG, PER WEEK
     Route: 058
  5. RALTERGVIR [Suspect]
     Active Substance: RALTEGRAVIR
     Indication: HIV INFECTION
     Dosage: UNK
  6. RALTERGVIR [Suspect]
     Active Substance: RALTEGRAVIR
     Indication: HEPATITIS C
  7. TELAPREVIR [Suspect]
     Active Substance: TELAPREVIR
     Indication: HEPATITIS C
  8. THROMBOPOIETIN RECEPTOR [Concomitant]
     Indication: HEPATITIS C
  9. PEGYLATED INTERFERON NOS [Suspect]
     Active Substance: PEGINTERFERON ALFA-2A OR PEGINTERFERON ALFA-2B OR PEGINTERFERON BETA-1A OR PEGINTERFERON LAMBDA-1A
     Indication: HEPATITIS C
  10. TELAPREVIR [Suspect]
     Active Substance: TELAPREVIR
     Indication: HIV INFECTION
     Dosage: UNK
  11. ERYTHROPOIETIN [Concomitant]
     Active Substance: ERYTHROPOIETIN
     Indication: HIV INFECTION
     Dosage: UNK
  12. THROMBOPOIETIN RECEPTOR [Concomitant]
     Indication: HIV INFECTION
     Dosage: UNK
  13. ATAZANAVIR [Suspect]
     Active Substance: ATAZANAVIR
     Indication: HEPATITIS C
  14. RITONAVIR. [Suspect]
     Active Substance: RITONAVIR
     Indication: HIV INFECTION
     Dosage: UNK
  15. GRANULOCYTE COLONY-STIMULATING FACTOR [Concomitant]
     Active Substance: GRANULOCYTE COLONY-STIMULATING FACTOR NOS
     Indication: HIV INFECTION
     Dosage: UNK
  16. EFAVIRENZ [Suspect]
     Active Substance: EFAVIRENZ
     Indication: HIV INFECTION
     Dosage: UNK
  17. EFAVIRENZ [Suspect]
     Active Substance: EFAVIRENZ
     Indication: HEPATITIS C
  18. TENOFOVIR/EMTRICITABINE [Suspect]
     Active Substance: EMTRICITABINE\TENOFOVIR
     Indication: HIV INFECTION
     Dosage: UNK
  19. TENOFOVIR/EMTRICITABINE [Suspect]
     Active Substance: EMTRICITABINE\TENOFOVIR
     Indication: HEPATITIS C
  20. RIBAVIRIN. [Suspect]
     Active Substance: RIBAVIRIN
     Indication: HIV INFECTION
     Dosage: 1000 MG, A DAY (FOR PATIENTS WEIGHING =/{ 75 KG)
  21. RITONAVIR. [Suspect]
     Active Substance: RITONAVIR
     Indication: HEPATITIS C
  22. GRANULOCYTE COLONY-STIMULATING FACTOR [Concomitant]
     Active Substance: GRANULOCYTE COLONY-STIMULATING FACTOR NOS
     Indication: HEPATITIS C

REACTIONS (2)
  - Disease recurrence [Unknown]
  - Hepatitis C [None]
